FAERS Safety Report 24583540 (Version 1)
Quarter: 2024Q4

REPORT INFORMATION
  Report Type: Spontaneous
  Country: BE (occurrence: BE)
  Receive Date: 20241106
  Receipt Date: 20241106
  Transmission Date: 20250115
  Serious: Yes (Other)
  Sender: ALEXION PHARMACEUTICALS
  Company Number: BE-AstraZeneca-CH-00726637A

PATIENT

DRUGS (4)
  1. CALQUENCE [Suspect]
     Active Substance: ACALABRUTINIB
  2. CALQUENCE [Suspect]
     Active Substance: ACALABRUTINIB
  3. CALQUENCE [Suspect]
     Active Substance: ACALABRUTINIB
  4. CALQUENCE [Suspect]
     Active Substance: ACALABRUTINIB

REACTIONS (2)
  - Gastrointestinal haemorrhage [Unknown]
  - Rectal neoplasm [Unknown]
